APPROVED DRUG PRODUCT: IVERMECTIN
Active Ingredient: IVERMECTIN
Strength: 1%
Dosage Form/Route: CREAM;TOPICAL
Application: A215210 | Product #001 | TE Code: AB
Applicant: ZYDUS LIFESCIENCES GLOBAL FZE
Approved: Aug 2, 2022 | RLD: No | RS: No | Type: RX